FAERS Safety Report 7419968-4 (Version None)
Quarter: 2011Q2

REPORT INFORMATION
  Report Type: 
  Country: None (occurrence: None)
  Receive Date: 20110418
  Receipt Date: 20110408
  Transmission Date: 20111010
  Serious: Yes (Hospitalization)
  Sender: FDA-Public Use
  Company Number: US-BIOGENIDEC-2011BI013388

PATIENT
  Age: 48 Year
  Sex: Female

DRUGS (3)
  1. AMPYRA [Concomitant]
     Indication: WHEELCHAIR USER
  2. AVONEX [Suspect]
     Indication: MULTIPLE SCLEROSIS
     Route: 030
  3. AVONEX [Suspect]
     Route: 030

REACTIONS (5)
  - NASAL DISORDER [None]
  - PULMONARY OEDEMA [None]
  - OROPHARYNGEAL PAIN [None]
  - NAUSEA [None]
  - PAIN [None]
